FAERS Safety Report 5847876-9 (Version None)
Quarter: 2008Q3

REPORT INFORMATION
  Report Type: 
  Country: None (occurrence: None)
  Receive Date: 20080818
  Receipt Date: 20080812
  Transmission Date: 20090109
  Serious: Yes (Other)
  Sender: FDA-Public Use
  Company Number: US-BAYER-200827514NA

PATIENT
  Age: 69 Year
  Sex: Female
  Weight: 58 kg

DRUGS (5)
  1. CLIMARA [Suspect]
     Indication: NIGHT SWEATS
     Route: 061
     Dates: start: 19980101, end: 19990101
  2. ESTRACE [Suspect]
     Indication: MENOPAUSE
     Dates: start: 19980101, end: 19990101
  3. PREMARIN [Suspect]
     Indication: MENOPAUSE
     Dates: start: 19820101, end: 20020101
  4. PREMPRO [Suspect]
     Indication: MENOPAUSE
     Dates: start: 19990101, end: 20020101
  5. PROGESTERONE [Suspect]
     Indication: DRUG USE FOR UNKNOWN INDICATION

REACTIONS (2)
  - BENIGN BREAST NEOPLASM [None]
  - BREAST CANCER [None]
